FAERS Safety Report 9113334 (Version 1)
Quarter: 2013Q1

REPORT INFORMATION
  Report Type: Spontaneous
  Country: US (occurrence: US)
  Receive Date: 20130131
  Receipt Date: 20130131
  Transmission Date: 20140127
  Serious: No
  Sender: FDA-Public Use
  Company Number: US-B.I. PHARMACEUTICALS,INC./RIDGEFIELD-2013-BI-02310BP

PATIENT
  Sex: Male
  Weight: 111 kg

DRUGS (1)
  1. MICARDIS [Suspect]
     Indication: HYPERTENSION
     Route: 048
     Dates: start: 201105

REACTIONS (3)
  - Blood potassium decreased [Recovered/Resolved]
  - Asthenia [Recovered/Resolved]
  - Dizziness [Not Recovered/Not Resolved]
